FAERS Safety Report 5607518-4 (Version None)
Quarter: 2008Q1

REPORT INFORMATION
  Report Type: 
  Country: None (occurrence: None)
  Receive Date: 20080130
  Receipt Date: 20080121
  Transmission Date: 20080703
  Serious: Yes (Hospitalization)
  Sender: FDA-Public Use
  Company Number: US-AVENTIS-200810426US

PATIENT
  Age: 56 Year
  Sex: Male

DRUGS (8)
  1. LANTUS [Suspect]
     Route: 051
     Dates: start: 20080110
  2. OPTICLIK (INSULIN INJECTION PEN) [Suspect]
     Dates: start: 20080110
  3. FOLIC ACID [Concomitant]
     Dosage: DOSE: UNK
  4. VITAMIN B 1 [Concomitant]
     Dosage: DOSE: UNK
  5. LACTULOSE [Concomitant]
     Dosage: DOSE: UNK
  6. GLIPIZIDE [Concomitant]
     Dosage: DOSE: UNK
  7. VITAMIN K [Concomitant]
     Dosage: DOSE: UNK
  8. COMBIVENT                          /01033501/ [Concomitant]
     Route: 055

REACTIONS (1)
  - AMMONIA INCREASED [None]
